FAERS Safety Report 20042643 (Version 1)
Quarter: 2021Q4

REPORT INFORMATION
  Report Type: Spontaneous
  Country: US (occurrence: US)
  Receive Date: 20211108
  Receipt Date: 20211108
  Transmission Date: 20220303
  Serious: Yes (Other)
  Sender: FDA-Public Use
  Company Number: US-GLAXOSMITHKLINE-US2021GSK229621

PATIENT
  Sex: Female

DRUGS (2)
  1. RANITIDINE [Suspect]
     Active Substance: RANITIDINE
     Indication: Breast cancer
     Dosage: UNK, QD
     Route: 065
     Dates: start: 201504, end: 201811
  2. RANITIDINE [Suspect]
     Active Substance: RANITIDINE
     Indication: Breast cancer
     Dosage: UNK, QD
     Route: 065
     Dates: start: 201504, end: 201811

REACTIONS (1)
  - Breast cancer [Unknown]
